FAERS Safety Report 9007990 (Version 3)
Quarter: 2013Q2

REPORT INFORMATION
  Report Type: Report from Study
  Country: DE (occurrence: DE)
  Receive Date: 20130110
  Receipt Date: 20130419
  Transmission Date: 20140414
  Serious: Yes (Hospitalization)
  Sender: FDA-Public Use
  Company Number: DE-ABBOTT-13P-062-1031810-00

PATIENT
  Age: 35 Year
  Sex: Male
  Weight: 72 kg

DRUGS (2)
  1. HUMIRA [Suspect]
     Indication: CROHN^S DISEASE
     Dates: start: 20120928, end: 201212
  2. HUMIRA [Suspect]
     Route: 058
     Dates: start: 201301

REACTIONS (3)
  - Intestinal dilatation [Unknown]
  - Abdominal lymphadenopathy [Unknown]
  - Gastrointestinal infection [Recovered/Resolved]
